FAERS Safety Report 8102789-7 (Version None)
Quarter: 2012Q1

REPORT INFORMATION
  Report Type: 
  Country: None (occurrence: None)
  Receive Date: 20120127
  Receipt Date: 20120123
  Transmission Date: 20120608
  Serious: Yes (Other)
  Sender: FDA-Public Use
  Company Number: 2011SP056303

PATIENT
  Age: 44 Year
  Sex: Female
  Weight: 64.3 kg

DRUGS (16)
  1. REBETOL [Suspect]
     Indication: HEPATITIS C
     Dosage: 800 MG; QD; PO ; 600 MG; QD; PO
     Route: 048
     Dates: start: 20110104, end: 20110427
  2. REBETOL [Suspect]
     Indication: HEPATITIS C
     Dosage: 800 MG; QD; PO ; 600 MG; QD; PO
     Route: 048
     Dates: start: 20110428, end: 20110721
  3. RABEPRAZOLE SODIUM [Concomitant]
  4. INTERFERON BETA NOS [Suspect]
     Indication: HEPATITIS C
     Dosage: SEE IMAGE
     Dates: start: 20110201
  5. INTERFERON BETA NOS [Suspect]
     Indication: HEPATITIS C
     Dosage: SEE IMAGE
     Dates: start: 20110721
  6. INTERFERON BETA NOS [Suspect]
     Indication: HEPATITIS C
     Dosage: SEE IMAGE
     Dates: start: 20110623
  7. INTERFERON BETA NOS [Suspect]
     Indication: HEPATITIS C
     Dosage: SEE IMAGE
     Dates: start: 20110112, end: 20110121
  8. INTERFERON BETA NOS [Suspect]
     Indication: HEPATITIS C
     Dosage: SEE IMAGE
     Dates: start: 20110104, end: 20110104
  9. INTERFERON BETA NOS [Suspect]
     Indication: HEPATITIS C
     Dosage: SEE IMAGE
     Dates: start: 20110105, end: 20110107
  10. MAGMITT [Concomitant]
  11. PLETAL [Concomitant]
  12. LOXOPROFEN SODIUM [Concomitant]
  13. MOTILIUM [Concomitant]
  14. MUCOSTA [Concomitant]
  15. LOXOPROFEN SODIUM [Concomitant]
  16. MUCOSTA [Concomitant]

REACTIONS (2)
  - PYREXIA [None]
  - SINUS BRADYCARDIA [None]
